FAERS Safety Report 19578714 (Version 2)
Quarter: 2021Q4

REPORT INFORMATION
  Report Type: Spontaneous
  Country: US (occurrence: US)
  Receive Date: 20210720
  Receipt Date: 20211011
  Transmission Date: 20220303
  Serious: Yes (Death, Life-Threatening, Hospitalization)
  Sender: FDA-Public Use
  Company Number: US-DRREDDYS-SPO/USA/21/0137741

PATIENT
  Age: 68 Year
  Sex: Male

DRUGS (12)
  1. TACROLIMUS [Suspect]
     Active Substance: TACROLIMUS
     Indication: Immunosuppressant drug therapy
     Dosage: IN EVENING
     Dates: start: 202002
  2. TACROLIMUS [Suspect]
     Active Substance: TACROLIMUS
     Dosage: IN MORNING
     Dates: start: 202003
  3. CYCLOSPORINE [Suspect]
     Active Substance: CYCLOSPORINE
     Indication: Immunosuppressant drug therapy
     Dates: start: 2020
  4. PREDNISONE [Suspect]
     Active Substance: PREDNISONE
     Indication: Immunosuppressant drug therapy
     Dates: start: 202002
  5. PREDNISONE [Suspect]
     Active Substance: PREDNISONE
     Dosage: FIFTEEN-DAY ORAL PREDNISONE TAPER
     Dates: start: 2020
  6. METHYLPREDNISOLONE [Suspect]
     Active Substance: METHYLPREDNISOLONE
     Indication: Gout
     Dates: start: 2020
  7. MYCOPHENOLATE MOFETIL [Suspect]
     Active Substance: MYCOPHENOLATE MOFETIL
     Indication: Immunosuppressant drug therapy
     Dates: start: 202002
  8. AMIODARONE HYDROCHLORIDE [Concomitant]
     Active Substance: AMIODARONE HYDROCHLORIDE
     Indication: Product used for unknown indication
  9. VALGANCICLOVIR [Concomitant]
     Active Substance: VALGANCICLOVIR
     Indication: Prophylaxis
     Dates: start: 202003
  10. NYSTATIN [Concomitant]
     Active Substance: NYSTATIN
     Indication: Prophylaxis
     Dates: start: 2020
  11. ATOVAQUONE [Concomitant]
     Active Substance: ATOVAQUONE
     Indication: Prophylaxis
     Dates: start: 202003
  12. INSULIN NOS [Concomitant]
     Active Substance: INSULIN NOS
     Indication: Hyperglycaemia
     Dates: start: 2020

REACTIONS (16)
  - Septic shock [Fatal]
  - Vascular pseudoaneurysm [Fatal]
  - Chest wall abscess [Fatal]
  - Acute kidney injury [Fatal]
  - Cutaneous mucormycosis [Fatal]
  - Condition aggravated [Fatal]
  - Wound infection bacterial [Fatal]
  - Enterococcal infection [Fatal]
  - Klebsiella infection [Fatal]
  - Enterobacter infection [Fatal]
  - Staphylococcal infection [Fatal]
  - Morganella infection [Fatal]
  - Mucormycosis [Fatal]
  - Enterococcal infection [Fatal]
  - Respiratory failure [Fatal]
  - Encephalopathy [Fatal]

NARRATIVE: CASE EVENT DATE: 20200101
